FAERS Safety Report 7162429-0 (Version None)
Quarter: 2010Q4

REPORT INFORMATION
  Report Type: 
  Country: None (occurrence: None)
  Receive Date: 20101215
  Receipt Date: 20091030
  Transmission Date: 20110411
  Serious: Yes (Other)
  Sender: FDA-Public Use
  Company Number: US-PFIZER INC-2009292432

PATIENT
  Sex: Male
  Weight: 118.82 kg

DRUGS (8)
  1. LYRICA [Suspect]
     Indication: BACK PAIN
     Dosage: 75 MG, 2X/DAY
     Dates: start: 20091028
  2. ADVAIR DISKUS 100/50 [Concomitant]
     Dosage: 100/50 MG
  3. METFORMIN [Concomitant]
     Dosage: 500 MG, 2X/DAY
  4. LISINOPRIL [Concomitant]
     Dosage: 40 MG, 1X/DAY
  5. SIMVASTATIN [Concomitant]
     Indication: HYPERLIPIDAEMIA
     Dosage: 40 MG, UNK
  6. TRUSOPT [Concomitant]
     Indication: GLAUCOMA
     Dosage: UNK
     Route: 047
  7. VICODIN [Concomitant]
     Indication: PAIN
     Dosage: 500 MG, AS NEEDED
  8. CORTISONE [Concomitant]
     Dosage: UNK

REACTIONS (1)
  - SLEEP APNOEA SYNDROME [None]
